FAERS Safety Report 23816417 (Version 1)
Quarter: 2024Q2

REPORT INFORMATION
  Report Type: Spontaneous
  Country: US (occurrence: US)
  Receive Date: 20240503
  Receipt Date: 20240503
  Transmission Date: 20240716
  Serious: Yes (Hospitalization)
  Sender: FDA-Public Use
  Company Number: US-PARI RESPIRATORY EQUIPMENT, INC.-2024PAR00033

PATIENT
  Sex: Male

DRUGS (2)
  1. KITABIS PAK [Suspect]
     Active Substance: TOBRAMYCIN
     Indication: Cystic fibrosis
     Dosage: INHALE THE CONTENTS OF ONE VIAL VIA NEBULIZER TWICE DAILY. ALTERNATE MONTH WITH CAYSTON
     Dates: start: 202306
  2. CAYSTON [Concomitant]
     Active Substance: AZTREONAM
     Dosage: ALTERNATE MONTH WITH KITABIS

REACTIONS (2)
  - Hospitalisation [Unknown]
  - Unevaluable event [Unknown]
